FAERS Safety Report 12931398 (Version 3)
Quarter: 2017Q1

REPORT INFORMATION
  Report Type: Spontaneous
  Country: US (occurrence: US)
  Receive Date: 20161110
  Receipt Date: 20170124
  Transmission Date: 20170428
  Serious: Yes (Other)
  Sender: FDA-Public Use
  Company Number: US-PFIZER INC-2016519208

PATIENT
  Age: 46 Year
  Sex: Male
  Weight: 91 kg

DRUGS (1)
  1. PROPOFOL. [Suspect]
     Active Substance: PROPOFOL
     Indication: SEDATION
     Dosage: 50 TO 80 MICROGRAMS/KILOGRAM/ HOUR
     Route: 041

REACTIONS (1)
  - Propofol infusion syndrome [Recovering/Resolving]
